FAERS Safety Report 5026728-0 (Version None)
Quarter: 2006Q2

REPORT INFORMATION
  Report Type: 
  Country: None (occurrence: None)
  Receive Date: 20060608
  Receipt Date: 20060602
  Transmission Date: 20061013
  Serious: Yes (Hospitalization)
  Sender: FDA-Public Use
  Company Number: 2006070976

PATIENT
  Age: 8 Year
  Sex: Male

DRUGS (2)
  1. DILANTIN [Suspect]
     Indication: CONVULSION
     Dosage: ORAL
     Route: 048
     Dates: start: 20060328
  2. BACTRIM [Suspect]
     Indication: ILL-DEFINED DISORDER
     Dates: start: 20050515

REACTIONS (7)
  - CONFUSIONAL STATE [None]
  - CONVULSION [None]
  - DELIRIUM [None]
  - DRUG INTERACTION [None]
  - ENCEPHALITIS [None]
  - HALLUCINATION [None]
  - OVERDOSE [None]
